FAERS Safety Report 23346620 (Version 1)
Quarter: 2023Q4

REPORT INFORMATION
  Report Type: Report from Study
  Country: CN (occurrence: CN)
  Receive Date: 20231228
  Receipt Date: 20231228
  Transmission Date: 20240109
  Serious: Yes (Death)
  Sender: FDA-Public Use
  Company Number: CN-BAYER-2023A183101

PATIENT
  Age: 59 Year
  Sex: Female

DRUGS (1)
  1. SORAFENIB [Suspect]
     Active Substance: SORAFENIB
     Indication: Acute myeloid leukaemia

REACTIONS (2)
  - Infection [Fatal]
  - Off label use [None]
